FAERS Safety Report 21510932 (Version 4)
Quarter: 2022Q4

REPORT INFORMATION
  Report Type: Report from Study
  Country: IT (occurrence: IT)
  Receive Date: 20221026
  Receipt Date: 20221130
  Transmission Date: 20230112
  Serious: No
  Sender: FDA-Public Use
  Company Number: IT-UCBSA-2022059280

PATIENT
  Sex: Male

DRUGS (1)
  1. NEUPRO [Suspect]
     Active Substance: ROTIGOTINE
     Indication: Product used for unknown indication
     Dosage: 4 MILLIGRAM, ONCE DAILY (QD)

REACTIONS (6)
  - Hypotension [Unknown]
  - Fatigue [Unknown]
  - Product quality issue [Unknown]
  - Product adhesion issue [Unknown]
  - Dyskinesia [Unknown]
  - Somnolence [Unknown]
